FAERS Safety Report 18179972 (Version 1)
Quarter: 2020Q3

REPORT INFORMATION
  Report Type: Spontaneous
  Country: ES (occurrence: ES)
  Receive Date: 20200821
  Receipt Date: 20200821
  Transmission Date: 20201103
  Serious: Yes (Hospitalization)
  Sender: FDA-Public Use
  Company Number: ES-TEVA-2020-ES-1816001

PATIENT
  Age: 37 Year
  Sex: Male

DRUGS (1)
  1. ENALAPRIL HIDROCLOROTIAZIDA 20/12,5 MG COMPRIMIDOS EFG , 28 COMPRIMIDO [Suspect]
     Active Substance: ENALAPRIL\HYDROCHLOROTHIAZIDE
     Indication: HYPERTENSION
     Dosage: 2 DOSAGE FORMS DAILY; 1?0?1
     Route: 048
     Dates: start: 20190801, end: 20200414

REACTIONS (2)
  - Hyponatraemia [Recovered/Resolved]
  - Depressed level of consciousness [Recovered/Resolved]

NARRATIVE: CASE EVENT DATE: 20200414
